FAERS Safety Report 7822044-X (Version None)
Quarter: 2011Q4

REPORT INFORMATION
  Report Type: 
  Country: None (occurrence: None)
  Receive Date: 20111018
  Receipt Date: 20111014
  Transmission Date: 20120403
  Serious: Yes (Other)
  Sender: FDA-Public Use
  Company Number: PHHO2011US04221

PATIENT
  Sex: Female
  Weight: 61.9 kg

DRUGS (2)
  1. GILENYA [Suspect]
     Dosage: 0.5 MG, QD
     Route: 048
     Dates: end: 20110302
  2. GILENYA [Suspect]
     Indication: MULTIPLE SCLEROSIS
     Dosage: DOSE BLINDED
     Route: 048
     Dates: start: 20100304

REACTIONS (3)
  - DYSPLASTIC NAEVUS [None]
  - INFLAMMATION [None]
  - SKIN LESION [None]
